FAERS Safety Report 6363057-7 (Version None)
Quarter: 2009Q3

REPORT INFORMATION
  Report Type: 
  Country: None (occurrence: None)
  Receive Date: 20090919
  Receipt Date: 20090611
  Transmission Date: 20100115
  Serious: No
  Sender: FDA-Public Use
  Company Number: US-ABBOTT-09P-163-0579782-00

PATIENT
  Age: 53 Year
  Sex: Male

DRUGS (9)
  1. HUMIRA [Suspect]
     Indication: ARTHRITIS
     Dates: start: 20090611
  2. HUMIRA [Suspect]
     Indication: PSORIASIS
  3. FOLIC ACID [Concomitant]
     Indication: DRUG USE FOR UNKNOWN INDICATION
  4. METHOTREXATE [Concomitant]
     Indication: DRUG USE FOR UNKNOWN INDICATION
  5. NEXIUM [Concomitant]
     Indication: DRUG USE FOR UNKNOWN INDICATION
  6. ANDROGEL [Concomitant]
     Indication: DRUG USE FOR UNKNOWN INDICATION
  7. CIALIS [Concomitant]
     Indication: DRUG USE FOR UNKNOWN INDICATION
  8. PROTOPIC [Concomitant]
     Indication: DRUG USE FOR UNKNOWN INDICATION
  9. BETAMETHAPROPIONATE [Concomitant]
     Indication: DRUG USE FOR UNKNOWN INDICATION

REACTIONS (1)
  - POOR QUALITY DRUG ADMINISTERED [None]
